FAERS Safety Report 17664094 (Version 2)
Quarter: 2020Q3

REPORT INFORMATION
  Report Type: Spontaneous
  Country: US (occurrence: US)
  Receive Date: 20200414
  Receipt Date: 20200715
  Transmission Date: 20201102
  Serious: No
  Sender: FDA-Public Use
  Company Number: US-ALLERGAN-2009026US

PATIENT
  Sex: Female

DRUGS (2)
  1. UBRELVY [Suspect]
     Active Substance: UBROGEPANT
     Indication: MIGRAINE
     Dosage: 50 MG
     Route: 048
  2. UBRELVY [Suspect]
     Active Substance: UBROGEPANT
     Dosage: 100 MG, PRN
     Route: 048
     Dates: start: 202002

REACTIONS (3)
  - Drug ineffective [Unknown]
  - Abdominal pain [Recovered/Resolved]
  - Product size issue [Unknown]
